FAERS Safety Report 9599910 (Version 1)
Quarter: 2013Q4

REPORT INFORMATION
  Report Type: Spontaneous
  Country: US (occurrence: US)
  Receive Date: 20131004
  Receipt Date: 20131004
  Transmission Date: 20140711
  Serious: No
  Sender: FDA-Public Use
  Company Number: US-AMGEN-USASP2013031952

PATIENT
  Age: 64 Year
  Sex: Female
  Weight: 78.01 kg

DRUGS (10)
  1. ENBREL [Suspect]
     Indication: PRODUCT USED FOR UNKNOWN INDICATION
     Dosage: 50 MG, QWK
     Route: 058
  2. AMBIEN [Concomitant]
     Dosage: 12.5 MG, UNK
  3. XANAX [Concomitant]
     Dosage: 1 MG, UNK
  4. SOMA [Concomitant]
     Dosage: 350 MG, UNK
  5. ZOCOR [Concomitant]
     Dosage: 40 MG, UNK
  6. METHOTREXATE [Concomitant]
     Dosage: 2.5 MG, UNK
  7. VICODIN [Concomitant]
     Dosage: 5-300 MG, UNK
  8. FOLIC ACID [Concomitant]
     Dosage: UNK
  9. FISH OIL [Concomitant]
     Dosage: UNK
  10. DIOVAN [Concomitant]
     Dosage: 160 MG, UNK

REACTIONS (4)
  - Pain in extremity [Unknown]
  - Arthralgia [Unknown]
  - Musculoskeletal stiffness [Unknown]
  - Joint stiffness [Unknown]
